FAERS Safety Report 22365607 (Version 1)
Quarter: 2023Q2

REPORT INFORMATION
  Report Type: Spontaneous
  Country: IL (occurrence: IL)
  Receive Date: 20230525
  Receipt Date: 20230525
  Transmission Date: 20230721
  Serious: Yes (Hospitalization, Other)
  Sender: FDA-Public Use
  Company Number: IL-SA-SAC20230523000192

PATIENT

DRUGS (1)
  1. DUPIXENT [Suspect]
     Active Substance: DUPILUMAB
     Dosage: UNK UNK, 1X (LOADING (DOSE)
     Route: 065

REACTIONS (2)
  - Dermatitis exfoliative generalised [Unknown]
  - Condition aggravated [Unknown]
